FAERS Safety Report 19564404 (Version 4)
Quarter: 2021Q3

REPORT INFORMATION
  Report Type: Spontaneous
  Country: CA (occurrence: CA)
  Receive Date: 20210716
  Receipt Date: 20210919
  Transmission Date: 20211014
  Serious: Yes (Other)
  Sender: FDA-Public Use
  Company Number: CA-CELLTRION INC.-2020CA024024

PATIENT

DRUGS (23)
  1. PREDNISONE. [Concomitant]
     Active Substance: PREDNISONE
     Dosage: UNK
     Dates: start: 20210816
  2. INFLECTRA [Suspect]
     Active Substance: INFLIXIMAB-DYYB
     Dosage: 400 MG, 0, 2, 6 THEN EVERY 8 WEEKS
     Route: 042
     Dates: start: 20200730
  3. PREDNISONE. [Concomitant]
     Active Substance: PREDNISONE
     Dosage: 40 MG (TAPER)
     Dates: start: 20210718
  4. INFLECTRA [Suspect]
     Active Substance: INFLIXIMAB-DYYB
     Dosage: 400 MG, 0, 2, 6 THEN EVERY 8 WEEKS
     Route: 042
     Dates: start: 20200925
  5. INFLECTRA [Suspect]
     Active Substance: INFLIXIMAB-DYYB
     Dosage: 400 MG, BOOSTER DOSE
     Route: 042
     Dates: start: 20201007, end: 20201007
  6. INFLECTRA [Suspect]
     Active Substance: INFLIXIMAB-DYYB
     Dosage: 400 MG, BOOSTER DOSE
     Route: 042
     Dates: start: 20201007
  7. INFLECTRA [Suspect]
     Active Substance: INFLIXIMAB-DYYB
     Dosage: 800 MG, EVERY 8 WEEKS
     Route: 042
     Dates: start: 20201203, end: 20210331
  8. INFLECTRA [Suspect]
     Active Substance: INFLIXIMAB-DYYB
     Dosage: 10 MG/KG, (900MG), RE?INDUCTION 0, 2, 6 THEN EVERY 6 WEEKS
     Route: 042
     Dates: start: 20210525
  9. INFLECTRA [Suspect]
     Active Substance: INFLIXIMAB-DYYB
     Dosage: 10 MG/KG, 0, 2, 6 THEN EVERY 6 WEEKS
     Route: 042
     Dates: start: 20210607
  10. INFLECTRA [Suspect]
     Active Substance: INFLIXIMAB-DYYB
     Dosage: 10 MG/KG, EVERY (Q) 6 WEEKS
     Route: 042
     Dates: start: 20210622
  11. IRON [Concomitant]
     Active Substance: IRON
     Dosage: UNK
     Dates: start: 20210816
  12. INFLECTRA [Suspect]
     Active Substance: INFLIXIMAB-DYYB
     Dosage: 400 MG, 0, 2, 6 THEN EVERY 8 WEEKS
     Route: 042
     Dates: start: 20200730
  13. INFLECTRA [Suspect]
     Active Substance: INFLIXIMAB-DYYB
     Dosage: 800 MG, EVERY 8 WEEKS
     Route: 042
     Dates: start: 20210331
  14. PREDNISONE. [Concomitant]
     Active Substance: PREDNISONE
     Dosage: UNK, FOR 8 WEEKS
  15. INFLECTRA [Suspect]
     Active Substance: INFLIXIMAB-DYYB
     Dosage: 400 MG, 0, 2, 6 THEN EVERY 8 WEEKS
     Route: 042
     Dates: start: 20200704
  16. INFLECTRA [Suspect]
     Active Substance: INFLIXIMAB-DYYB
     Dosage: 800 MG, EVERY 8 WEEKS
     Route: 042
     Dates: start: 20210126
  17. INFLECTRA [Suspect]
     Active Substance: INFLIXIMAB-DYYB
     Dosage: 10 MG/KG, (RE?INDUCTION AT WEEK 0, 2, 6, THEN EVERY 6 WEEKS )
     Route: 042
     Dates: start: 20210607
  18. INFLECTRA [Suspect]
     Active Substance: INFLIXIMAB-DYYB
     Dosage: 10 MG/KG,  EVERY 6 WEEKS
     Route: 042
     Dates: start: 20210706
  19. INFLECTRA [Suspect]
     Active Substance: INFLIXIMAB-DYYB
     Dosage: 10 MG/KG,  EVERY 6 WEEKS
     Route: 042
     Dates: start: 20210817
  20. INFLECTRA [Suspect]
     Active Substance: INFLIXIMAB-DYYB
     Indication: CROHN^S DISEASE
     Dosage: 400 MG, 0, 2, 6 THEN EVERY 8 WEEKS
     Route: 042
     Dates: start: 20200622, end: 20200925
  21. INFLECTRA [Suspect]
     Active Substance: INFLIXIMAB-DYYB
     Dosage: 400 MG, 0, 2, 6 THEN EVERY 8 WEEKS
     Route: 042
     Dates: start: 20200704
  22. INFLECTRA [Suspect]
     Active Substance: INFLIXIMAB-DYYB
     Dosage: 10 MG/KG, 0, 2, 6 THEN EVERY 6 WEEKS
     Route: 042
     Dates: start: 20210706
  23. IRON [Concomitant]
     Active Substance: IRON
     Dosage: UNK, IRON INFUSIONS ARRANGED FOR PT ON OUT PT BASIS

REACTIONS (25)
  - Myalgia [Unknown]
  - Paraesthesia [Unknown]
  - Haematochezia [Not Recovered/Not Resolved]
  - Off label use [Unknown]
  - Incorrect dose administered [Unknown]
  - Cough [Unknown]
  - Malaise [Unknown]
  - Anaemia [Unknown]
  - Vision blurred [Unknown]
  - Infusion site extravasation [Unknown]
  - Urticaria [Recovering/Resolving]
  - Musculoskeletal stiffness [Unknown]
  - Pallor [Unknown]
  - Depression [Unknown]
  - Muscle spasms [Unknown]
  - Musculoskeletal chest pain [Unknown]
  - Eating disorder [Unknown]
  - Weight decreased [Unknown]
  - Drug ineffective [Unknown]
  - Inappropriate schedule of product administration [Unknown]
  - Papule [Recovering/Resolving]
  - Illness [Unknown]
  - Swelling [Unknown]
  - Fatigue [Not Recovered/Not Resolved]
  - Condition aggravated [Not Recovered/Not Resolved]

NARRATIVE: CASE EVENT DATE: 20200629
